FAERS Safety Report 5994480-8 (Version None)
Quarter: 2008Q4

REPORT INFORMATION
  Report Type: 
  Country: None (occurrence: None)
  Receive Date: 20081212
  Receipt Date: 20080826
  Transmission Date: 20090506
  Serious: No
  Sender: FDA-Public Use
  Company Number: US-AMGEN-KDL304148

PATIENT
  Sex: Female

DRUGS (1)
  1. ENBREL [Suspect]
     Indication: RHEUMATOID ARTHRITIS
     Route: 058
     Dates: start: 20021122

REACTIONS (13)
  - DEFORMITY [None]
  - FALL [None]
  - INFECTION [None]
  - INJECTION SITE IRRITATION [None]
  - JOINT SPRAIN [None]
  - PSEUDOMONAS INFECTION [None]
  - RHEUMATOID ARTHRITIS [None]
  - ROTATOR CUFF SYNDROME [None]
  - SINUSITIS [None]
  - STAPHYLOCOCCAL INFECTION [None]
  - TOOTH DISORDER [None]
  - TOOTH FRACTURE [None]
  - ULCER HAEMORRHAGE [None]
